FAERS Safety Report 5046366-3 (Version None)
Quarter: 2006Q3

REPORT INFORMATION
  Report Type: 
  Country: None (occurrence: None)
  Receive Date: 20060710
  Receipt Date: 20060630
  Transmission Date: 20061208
  Serious: Yes (Hospitalization)
  Sender: FDA-Public Use
  Company Number: DE-SANOFI-SYNTHELABO-F04200600125

PATIENT
  Sex: Male
  Weight: 54.3 kg

DRUGS (2)
  1. ELOXATIN [Suspect]
     Indication: METASTATIC NEOPLASM
     Route: 041
     Dates: start: 20060524, end: 20060524
  2. CAPECITABINE [Suspect]
     Indication: METASTATIC NEOPLASM
     Route: 048
     Dates: start: 20060504, end: 20060517

REACTIONS (3)
  - ENDOCARDITIS [None]
  - LEUKOCYTOSIS [None]
  - PYREXIA [None]
